FAERS Safety Report 17106111 (Version 1)
Quarter: 2019Q4

REPORT INFORMATION
  Report Type: Report from Study
  Country: JP (occurrence: JP)
  Receive Date: 20191203
  Receipt Date: 20191203
  Transmission Date: 20200122
  Serious: Yes (Death)
  Sender: FDA-Public Use
  Company Number: JP-ACTELION-A-CH2019-198811

PATIENT
  Age: 88 Year
  Sex: Female

DRUGS (18)
  1. TRACLEER [Suspect]
     Active Substance: BOSENTAN
     Indication: SCLERODERMA ASSOCIATED DIGITAL ULCER
     Dosage: 62.5 MG, BID
     Route: 048
     Dates: start: 20171005, end: 20171101
  2. LASIX [Concomitant]
     Active Substance: FUROSEMIDE
  3. FLAVERIC [Concomitant]
     Active Substance: BENPROPERINE PHOSPHATE
  4. CLARITHROMYCIN. [Concomitant]
     Active Substance: CLARITHROMYCIN
  5. TRAMCET [Concomitant]
     Active Substance: ACETAMINOPHEN\TRAMADOL
  6. PROSTANDIN [Concomitant]
  7. AMLODIPINE [Concomitant]
     Active Substance: AMLODIPINE BESYLATE
  8. FEBURIC [Concomitant]
     Active Substance: FEBUXOSTAT
  9. LANSOPRAZOLE. [Concomitant]
     Active Substance: LANSOPRAZOLE
  10. CEFTRIAXONE NA [Concomitant]
     Active Substance: CEFTRIAXONE
  11. LIPLE [Concomitant]
     Active Substance: ALPROSTADIL
  12. JUVELA N [Concomitant]
     Active Substance: TOCOPHERYL NICOTINATE, D-.ALPHA.
  13. ANPLAG [Concomitant]
     Active Substance: SARPOGRELATE
  14. FIBLAST [Concomitant]
  15. LIMAPROST ALFADEX [Concomitant]
     Active Substance: LIMAPROST
  16. KAYEXALATE [Concomitant]
     Active Substance: SODIUM POLYSTYRENE SULFONATE
  17. PREDNISOLONE. [Concomitant]
     Active Substance: PREDNISOLONE
  18. KIPRES [Concomitant]
     Active Substance: MONTELUKAST SODIUM

REACTIONS (1)
  - Cardiac failure [Fatal]

NARRATIVE: CASE EVENT DATE: 20171102
